FAERS Safety Report 4433718-5 (Version None)
Quarter: 2004Q3

REPORT INFORMATION
  Report Type: 
  Country: None (occurrence: None)
  Receive Date: 20040825
  Receipt Date: 20040825
  Transmission Date: 20050211
  Serious: Yes (Hospitalization)
  Sender: FDA-Public Use
  Company Number: None

PATIENT
  Age: 80 Year
  Sex: Female

DRUGS (3)
  1. DOCETAXEL [Suspect]
     Indication: NON-SMALL CELL LUNG CANCER
     Dosage: 30 MG/M2 IV D1,8,15
     Route: 042
     Dates: start: 20040801
  2. DOCETAXEL [Suspect]
     Indication: NON-SMALL CELL LUNG CANCER
     Dosage: 30 MG/M2 IV D1,8,15
     Route: 042
     Dates: start: 20040809
  3. IRESSA [Suspect]
     Indication: NON-SMALL CELL LUNG CANCER
     Dosage: 250 MG PO QD DAILY SINCE 7/19/04
     Route: 048
     Dates: start: 20040719

REACTIONS (7)
  - DECREASED APPETITE [None]
  - DEHYDRATION [None]
  - DEPRESSION [None]
  - DIARRHOEA [None]
  - FAILURE TO THRIVE [None]
  - MUCOSAL INFLAMMATION [None]
  - URINARY TRACT INFECTION [None]
